FAERS Safety Report 24787646 (Version 1)
Quarter: 2024Q4

REPORT INFORMATION
  Report Type: Spontaneous
  Country: US (occurrence: US)
  Receive Date: 20241230
  Receipt Date: 20241230
  Transmission Date: 20250115
  Serious: Yes (Other)
  Sender: AUROBINDO
  Company Number: US-MLMSERVICE-20241209-PI288951-00312-1

PATIENT
  Age: 24 Year
  Sex: Female

DRUGS (1)
  1. TESTOSTERONE [Suspect]
     Active Substance: TESTOSTERONE
     Indication: Gender dysphoria
     Dosage: 100 MILLIGRAM, EVERY WEEK
     Route: 030

REACTIONS (1)
  - Hepatic adenoma [Recovering/Resolving]
